FAERS Safety Report 7753150-6 (Version None)
Quarter: 2011Q3

REPORT INFORMATION
  Report Type: 
  Country: None (occurrence: None)
  Receive Date: 20110915
  Receipt Date: 20110912
  Transmission Date: 20111222
  Serious: Yes (Other)
  Sender: FDA-Public Use
  Company Number: BR-PFIZER INC-2011153802

PATIENT
  Age: 43 Year
  Sex: Female
  Weight: 65 kg

DRUGS (7)
  1. VARENICLINE TARTRATE [Suspect]
     Indication: TOBACCO USER
     Dosage: 0.5 MG, 1X/DAY
     Route: 048
     Dates: start: 20110612, end: 20110101
  2. LIORAM [Suspect]
     Indication: SLEEP DISORDER
     Dosage: UNK
     Dates: start: 20110614
  3. ESCITALOPRAM OXALATE [Concomitant]
     Indication: SOCIAL PHOBIA
     Dosage: UNK
  4. ZOLOFT [Concomitant]
     Indication: ANXIETY
     Dosage: UNK
  5. VARENICLINE TARTRATE [Suspect]
     Indication: SMOKING CESSATION THERAPY
     Dosage: TWO TABLETS, DAILY
     Route: 048
     Dates: start: 20110101, end: 20110101
  6. CLONAZEPAM [Concomitant]
     Indication: ANXIETY
     Dosage: 20 DROPS, UNKNOWN FREQUENCY
     Dates: start: 20070101
  7. CLONAZEPAM [Concomitant]
     Indication: INSOMNIA

REACTIONS (3)
  - HYPOTENSION [None]
  - CHEST PAIN [None]
  - DYSPNOEA [None]
